FAERS Safety Report 9421349 (Version 5)
Quarter: 2014Q1

REPORT INFORMATION
  Report Type: Spontaneous
  Country: US (occurrence: US)
  Receive Date: 20130725
  Receipt Date: 20140324
  Transmission Date: 20141002
  Serious: Yes (Other)
  Sender: FDA-Public Use
  Company Number: US-PFIZER INC-2013217556

PATIENT
  Age: 44 Year
  Sex: Female
  Weight: 105 kg

DRUGS (5)
  1. CHANTIX [Suspect]
     Indication: SMOKING CESSATION THERAPY
     Dosage: 0.5 MG, 1X/DAY
     Route: 048
     Dates: start: 20130721, end: 201307
  2. CHANTIX [Suspect]
     Dosage: 0.5 MG, 2X/DAY
     Route: 048
     Dates: start: 201307, end: 2013
  3. CHANTIX [Suspect]
     Dosage: 1 MG, 2X/DAY
     Route: 048
     Dates: start: 2013, end: 201312
  4. OMEPRAZOLE [Concomitant]
     Indication: GASTROOESOPHAGEAL REFLUX DISEASE
     Dosage: UNK; AS NEEDED
  5. DIAZEPAM [Concomitant]
     Indication: POST-TRAUMATIC STRESS DISORDER
     Dosage: 10 MG, 3X/DAY
     Route: 048

REACTIONS (20)
  - Drug dependence [Unknown]
  - Alcohol abuse [Unknown]
  - Drug dependence [Unknown]
  - Anxiety [Unknown]
  - Presyncope [Unknown]
  - Hair growth abnormal [Unknown]
  - Dizziness [Unknown]
  - Decreased appetite [Unknown]
  - Sedation [Unknown]
  - Therapeutic response unexpected [Unknown]
  - Weight decreased [Unknown]
  - Feeling of relaxation [Unknown]
  - Therapeutic response unexpected [Unknown]
  - Somnolence [Unknown]
  - Therapeutic response unexpected [Unknown]
  - Abnormal dreams [Unknown]
  - Pain [Unknown]
  - Flatulence [Unknown]
  - Weight increased [Recovering/Resolving]
  - Fluid retention [Recovering/Resolving]
